FAERS Safety Report 10651697 (Version 1)
Quarter: 2014Q4

REPORT INFORMATION
  Report Type: Spontaneous
  Country: CN (occurrence: CN)
  Receive Date: 20141215
  Receipt Date: 20141215
  Transmission Date: 20150529
  Serious: Yes (Other)
  Sender: FDA-Public Use
  Company Number: CN-PFIZER INC-2014337917

PATIENT
  Age: 83 Year
  Sex: Female

DRUGS (2)
  1. ZYVOX [Suspect]
     Active Substance: LINEZOLID
     Indication: CHOLECYSTITIS ACUTE
     Dosage: 600 MG, 2X/DAY
     Route: 041
     Dates: start: 20120625, end: 20120713
  2. HUMAN SERUM ALBUMIN [Concomitant]
     Dosage: 100 G, UNK
     Route: 041
     Dates: start: 20120627

REACTIONS (2)
  - Renal impairment [Not Recovered/Not Resolved]
  - Full blood count abnormal [Not Recovered/Not Resolved]

NARRATIVE: CASE EVENT DATE: 20120628
